FAERS Safety Report 8419478-1 (Version None)
Quarter: 2012Q2

REPORT INFORMATION
  Report Type: 
  Country: None (occurrence: None)
  Receive Date: 20120604
  Receipt Date: 20120604
  Transmission Date: 20120825
  Serious: Yes (Other)
  Sender: FDA-Public Use
  Company Number: None

PATIENT
  Sex: Male
  Weight: 104.3273 kg

DRUGS (1)
  1. CALMOSEPTINE [Suspect]
     Indication: RECTAL HAEMORRHAGE
     Dates: start: 20120530, end: 20120602

REACTIONS (6)
  - PRURITUS [None]
  - ERYTHEMA [None]
  - LIP SWELLING [None]
  - FEELING ABNORMAL [None]
  - RASH [None]
  - CHEST DISCOMFORT [None]
